FAERS Safety Report 8320687-0 (Version None)
Quarter: 2012Q2

REPORT INFORMATION
  Report Type: 
  Country: None (occurrence: None)
  Receive Date: 20120430
  Receipt Date: 20120419
  Transmission Date: 20120825
  Serious: Yes (Other)
  Sender: FDA-Public Use
  Company Number: US-AMGEN-USASP2012019934

PATIENT
  Age: 58 Year
  Sex: Male

DRUGS (3)
  1. SULFASALAZINE [Concomitant]
     Dosage: UNK
     Dates: start: 20020101, end: 20050401
  2. LEFLUNOMIDE [Concomitant]
     Dosage: UNK
     Dates: start: 20020101
  3. ENBREL [Suspect]
     Indication: RHEUMATOID ARTHRITIS
     Dosage: 25 MG, 2 TIMES/WK
     Dates: start: 20020101, end: 20100101

REACTIONS (5)
  - SURGERY [None]
  - BURSITIS INFECTIVE [None]
  - IMPAIRED HEALING [None]
  - WOUND SECRETION [None]
  - POSTOPERATIVE WOUND INFECTION [None]
